FAERS Safety Report 7804500-3 (Version None)
Quarter: 2011Q4

REPORT INFORMATION
  Report Type: 
  Country: None (occurrence: None)
  Receive Date: 20111010
  Receipt Date: 20111003
  Transmission Date: 20120403
  Serious: Yes (Other)
  Sender: FDA-Public Use
  Company Number: PHHY2011JP54870

PATIENT
  Sex: Male
  Weight: 81 kg

DRUGS (10)
  1. GLIMICRON [Concomitant]
     Indication: DIABETES MELLITUS
     Dosage: 40 MG, UNK
     Route: 048
     Dates: start: 20100305
  2. ESTRACYT [Concomitant]
     Indication: PROSTATE CANCER
     Dosage: 626.8 MG, UNK
     Route: 048
     Dates: start: 20090427
  3. DUTASTERIDE [Concomitant]
     Indication: BENIGN PROSTATIC HYPERPLASIA
     Dosage: 0.5 MG, UNK
     Route: 048
     Dates: start: 20110107
  4. DECADRON [Concomitant]
     Indication: PROSTATE CANCER
     Dosage: 1 MG, UNK
     Route: 048
     Dates: start: 20091029
  5. ZOMETA [Suspect]
     Indication: METASTASES TO BONE
     Dosage: 4 MG, UNK
     Route: 041
     Dates: start: 20081226, end: 20110427
  6. AMARYL [Concomitant]
     Dosage: 1 MG, UNK
     Route: 048
     Dates: start: 20110204
  7. SITAGLIPTIN PHOSPHATE [Concomitant]
     Indication: DIABETES MELLITUS
     Dosage: 50 MG, UNK
     Route: 048
     Dates: start: 20110204
  8. METFORMIN HCL [Concomitant]
     Indication: DIABETES MELLITUS
     Dosage: 250 MG, UNK
     Route: 048
     Dates: start: 20081224
  9. CANDESARTAN CILEXETIL [Concomitant]
     Indication: HYPERTENSION
     Dosage: 8 MG, UNK
     Route: 048
     Dates: start: 20090407
  10. FAMOTIDINE [Concomitant]
     Indication: GASTRIC MUCOSAL LESION
     Dosage: 20 MG, UNK
     Route: 048
     Dates: start: 20100305

REACTIONS (5)
  - SWELLING [None]
  - ERYTHEMA [None]
  - EXPOSED BONE IN JAW [None]
  - BONE LESION [None]
  - OSTEONECROSIS OF JAW [None]
